FAERS Safety Report 22330012 (Version 1)
Quarter: 2023Q2

REPORT INFORMATION
  Report Type: Spontaneous
  Country: US (occurrence: None)
  Receive Date: 20230517
  Receipt Date: 20230517
  Transmission Date: 20230722
  Serious: No
  Sender: FDA-Public Use
  Company Number: US-ROCHE-3187944

PATIENT
  Age: 79 Year
  Sex: Female

DRUGS (1)
  1. ACTEMRA [Suspect]
     Active Substance: TOCILIZUMAB
     Indication: Giant cell arteritis
     Route: 065

REACTIONS (7)
  - Impaired healing [Unknown]
  - Gastric disorder [Unknown]
  - Urinary tract disorder [Unknown]
  - Gingival erythema [Unknown]
  - Noninfective gingivitis [Unknown]
  - Gingivitis [Unknown]
  - Gingival pain [Unknown]
